FAERS Safety Report 14970240 (Version 3)
Quarter: 2023Q1

REPORT INFORMATION
  Report Type: Spontaneous
  Country: US (occurrence: US)
  Receive Date: 20180604
  Receipt Date: 20230116
  Transmission Date: 20230418
  Serious: Yes (Other)
  Sender: FDA-Public Use
  Company Number: US-ALLERGAN-1828701US

PATIENT
  Sex: Female

DRUGS (1)
  1. TAYTULLA [Suspect]
     Active Substance: ETHINYL ESTRADIOL\NORETHINDRONE ACETATE
     Indication: Contraception
     Dosage: UNK, QD
     Route: 048
     Dates: start: 201802, end: 20180522

REACTIONS (20)
  - Traumatic delivery [Unknown]
  - Perineal injury [Unknown]
  - Vulvovaginal injury [Unknown]
  - Perineal pain [Not Recovered/Not Resolved]
  - Post-traumatic pain [Not Recovered/Not Resolved]
  - Prolonged labour [Unknown]
  - False labour [Unknown]
  - Dehydration [Unknown]
  - Emotional distress [Unknown]
  - Pain [Unknown]
  - Accidental use of placebo [Unknown]
  - Wrong schedule [Unknown]
  - Diarrhoea [Unknown]
  - Pregnancy [Unknown]
  - Drug ineffective [Unknown]
  - Nausea [Unknown]
  - Vomiting [Unknown]
  - Dizziness [Unknown]
  - Vaginal haemorrhage [Unknown]
  - Product packaging issue [Unknown]
